FAERS Safety Report 9031307 (Version 1)
Quarter: 2013Q1

REPORT INFORMATION
  Report Type: Spontaneous
  Country: US (occurrence: US)
  Receive Date: 20130124
  Receipt Date: 20130124
  Transmission Date: 20140127
  Serious: Yes (Hospitalization)
  Sender: FDA-Public Use
  Company Number: US-PFIZER INC-2013029660

PATIENT
  Age: 54 Year
  Sex: Male
  Weight: 74.83 kg

DRUGS (3)
  1. ARTHROTEC [Suspect]
     Indication: DISABILITY
     Dosage: UNK,(50/0.2MG), 2X/DAY
     Dates: start: 2004, end: 20121108
  2. ARTHROTEC [Suspect]
     Indication: SPINAL OSTEOARTHRITIS
  3. SIMVASTATIN [Concomitant]
     Indication: BLOOD CHOLESTEROL ABNORMAL
     Dosage: 20 MG, DAILY

REACTIONS (2)
  - Myocardial infarction [Unknown]
  - Myocardial infarction [Unknown]
